FAERS Safety Report 9253924 (Version 1)
Quarter: 2013Q1

REPORT INFORMATION
  Report Type: Spontaneous
  Country: US (occurrence: None)
  Receive Date: 20121203
  Receipt Date: 20121203
  Transmission Date: 20140127
  Serious: Yes (Hospitalization, Other)
  Sender: FDA-Public Use
  Company Number: 2011SP048222

PATIENT
  Age: 34 Year
  Sex: Female
  Weight: 97.5 kg

DRUGS (3)
  1. NUVARING [Suspect]
     Indication: CONTRACEPTION
     Dates: start: 20071214, end: 20091031
  2. HERBS (UNSPECIFIED) (HERBS (UNSPECIFIED)) [Concomitant]
  3. VITAMINS (UNSPECIFIED) (VITAMINS (UNSPECIFIED)) [Concomitant]

REACTIONS (7)
  - Cerebrovascular accident [None]
  - Hyperlipidaemia [None]
  - Presyncope [None]
  - Hypertension [None]
  - Abdominal pain [None]
  - Candida infection [None]
  - Palpitations [None]
